FAERS Safety Report 8934662 (Version 1)
Quarter: 2012Q4

REPORT INFORMATION
  Report Type: 
  Country: US (occurrence: US)
  Receive Date: 20121129
  Receipt Date: 20121129
  Transmission Date: 20130627
  Serious: Yes (Other)
  Sender: FDA-Public Use
  Company Number: CHPA2012US024307

PATIENT
  Age: 49 Year
  Sex: Female

DRUGS (5)
  1. KERI UNKNOWN [Suspect]
     Indication: THERAPEUTIC SKIN CARE TOPICAL
     Dosage: Unk, BID
     Route: 061
  2. AMMONIUM LACTATE [Suspect]
     Indication: DRY SKIN
     Dosage: Unk, Unk
  3. KERI ORIGINAL [Concomitant]
     Indication: THERAPEUTIC SKIN CARE TOPICAL
     Dosage: Unk, Unk
     Route: 061
     Dates: start: 2011
  4. DRUG THERAPY NOS [Concomitant]
     Indication: THERAPEUTIC SKIN CARE TOPICAL
     Dosage: Unk, Unk
  5. DRUG THERAPY NOS [Concomitant]
     Dosage: Unk, TID

REACTIONS (16)
  - Haemochromatosis [Not Recovered/Not Resolved]
  - Blood count abnormal [Not Recovered/Not Resolved]
  - Protein total increased [Not Recovered/Not Resolved]
  - Hepatitis C [Recovered/Resolved]
  - Liver disorder [Recovered/Resolved]
  - Reflexes abnormal [Not Recovered/Not Resolved]
  - Tremor [Unknown]
  - Injury associated with device [Recovered/Resolved]
  - Rash [Recovered/Resolved]
  - Dry skin [Recovered/Resolved]
  - Rheumatoid arthritis [Recovered/Resolved]
  - Osteoarthritis [Not Recovered/Not Resolved]
  - Gastrooesophageal reflux disease [Not Recovered/Not Resolved]
  - Malaise [Recovered/Resolved]
  - Skin burning sensation [Recovered/Resolved]
  - Visual impairment [Unknown]
